FAERS Safety Report 25855251 (Version 2)
Quarter: 2025Q3

REPORT INFORMATION
  Report Type: Spontaneous
  Country: US (occurrence: US)
  Receive Date: 20250927
  Receipt Date: 20250930
  Transmission Date: 20251021
  Serious: No
  Sender: SANOFI AVENTIS
  Company Number: US-SA-2025SA288525

PATIENT
  Age: 25 Year
  Sex: Male

DRUGS (1)
  1. DUPIXENT [Suspect]
     Active Substance: DUPILUMAB
     Dosage: 300 MG, QOW
     Route: 058
     Dates: start: 20250617, end: 2025

REACTIONS (5)
  - Glossodynia [Unknown]
  - Injection site pain [Unknown]
  - Rash [Unknown]
  - Discomfort [Unknown]
  - Oral herpes [Unknown]

NARRATIVE: CASE EVENT DATE: 20250101
